FAERS Safety Report 4436885-2 (Version None)
Quarter: 2004Q3

REPORT INFORMATION
  Report Type: 
  Country: None (occurrence: None)
  Receive Date: 20040830
  Receipt Date: 20040528
  Transmission Date: 20050211
  Serious: Yes (Death)
  Sender: FDA-Public Use
  Company Number: PHBS2004JP07025

PATIENT
  Age: 69 Year
  Sex: Male
  Weight: 64 kg

DRUGS (2)
  1. NEORAL [Suspect]
     Indication: APLASTIC ANAEMIA
     Dosage: 150 MG/D
     Route: 048
     Dates: start: 20010926, end: 20021126
  2. LYMPHOGLOBULINE [Suspect]
     Indication: APLASTIC ANAEMIA
     Dosage: 960 MG/D
     Route: 042
     Dates: start: 20011001, end: 20011005

REACTIONS (2)
  - MALIGNANT PLEURAL EFFUSION [None]
  - PLEURAL EFFUSION [None]
